FAERS Safety Report 20404558 (Version 1)
Quarter: 2022Q1

REPORT INFORMATION
  Report Type: Spontaneous
  Country: US (occurrence: None)
  Receive Date: 20220128
  Receipt Date: 20220128
  Transmission Date: 20220424
  Serious: Yes (Other)
  Sender: FDA-Public Use
  Company Number: None

PATIENT
  Age: 60 Year
  Sex: Female
  Weight: 89.77 kg

DRUGS (27)
  1. TASIGNA [Suspect]
     Active Substance: NILOTINIB
     Indication: Chronic myeloid leukaemia
     Dosage: FREQUENCY : TWICE A DAY;?
     Route: 048
     Dates: start: 20220104
  2. ALBUTEROL [Concomitant]
  3. ASPIRIN [Concomitant]
     Active Substance: ASPIRIN
  4. ATORVASTATIN [Concomitant]
     Active Substance: ATORVASTATIN
  5. VITAMIN B COMPLEX [Concomitant]
     Active Substance: CYANOCOBALAMIN\DEXPANTHENOL\NIACINAMIDE\PYRIDOXINE HYDROCHLORIDE\RIBOFLAVIN 5^-PHOSPHATE SODIUM\THIA
  6. BISACODYL [Concomitant]
     Active Substance: BISACODYL
  7. CLINDAMYCIN [Concomitant]
     Active Substance: CLINDAMYCIN
  8. CYMBALTA [Concomitant]
     Active Substance: DULOXETINE HYDROCHLORIDE
  9. ELIQUIS [Concomitant]
     Active Substance: APIXABAN
  10. EPOGEN [Concomitant]
     Active Substance: ERYTHROPOIETIN
  11. FAMOTIDINE [Concomitant]
     Active Substance: FAMOTIDINE
  12. FLEET ENEMA [Concomitant]
     Active Substance: SODIUM PHOSPHATE, DIBASIC\SODIUM PHOSPHATE, MONOBASIC
  13. GABAPENTIN [Concomitant]
     Active Substance: GABAPENTIN
  14. HUMALOG [Concomitant]
     Active Substance: INSULIN LISPRO
  15. IRON [Concomitant]
     Active Substance: IRON
  16. LINEZOLID [Concomitant]
     Active Substance: LINEZOLID
  17. MAGNESIUM OXIDE [Concomitant]
     Active Substance: MAGNESIUM OXIDE
  18. MELATONIN [Concomitant]
     Active Substance: MELATONIN
  19. MIDODRINE [Concomitant]
     Active Substance: MIDODRINE
  20. MILK OF MAGNESIA [Concomitant]
     Active Substance: MAGNESIUM HYDROXIDE
  21. MORPHINE SULFATE [Concomitant]
     Active Substance: MORPHINE SULFATE
  22. OXYCODONE [Concomitant]
     Active Substance: OXYCODONE
  23. PROBIOTICS NOS [Concomitant]
     Active Substance: PROBIOTICS NOS
  24. SENNA [Concomitant]
     Active Substance: SENNA LEAF\SENNOSIDES\SENNOSIDES A AND B
  25. SYNTHROID [Concomitant]
     Active Substance: LEVOTHYROXINE SODIUM
  26. TYLENOL [Concomitant]
     Active Substance: ACETAMINOPHEN
  27. ZOFRAN [Concomitant]
     Active Substance: ONDANSETRON HYDROCHLORIDE

REACTIONS (2)
  - Electrocardiogram abnormal [None]
  - Therapy interrupted [None]
